FAERS Safety Report 5861163-4 (Version None)
Quarter: 2008Q3

REPORT INFORMATION
  Report Type: 
  Country: None (occurrence: None)
  Receive Date: 20080827
  Receipt Date: 20080304
  Transmission Date: 20090109
  Serious: No
  Sender: FDA-Public Use
  Company Number: US-ABBOTT-08P-163-0441073-00

PATIENT
  Sex: Male
  Weight: 114 kg

DRUGS (7)
  1. NIASPAN [Suspect]
     Indication: BLOOD CHOLESTEROL INCREASED
     Route: 048
     Dates: start: 20080201
  2. WARFARIN SODIUM [Concomitant]
     Indication: THROMBOSIS
  3. GLIPIZIDE [Concomitant]
     Indication: DIABETES MELLITUS
  4. GOUT PILL [Concomitant]
     Indication: DRUG USE FOR UNKNOWN INDICATION
  5. CLONAZEPAM [Concomitant]
     Indication: HYPERTENSION
  6. FENOFIBRATE [Concomitant]
     Indication: BLOOD CHOLESTEROL INCREASED
  7. PIOGLITAZONE [Concomitant]
     Indication: DIABETES MELLITUS

REACTIONS (2)
  - GENERALISED ERYTHEMA [None]
  - HYPERSENSITIVITY [None]
